FAERS Safety Report 23245930 (Version 1)
Quarter: 2023Q4

REPORT INFORMATION
  Report Type: Spontaneous
  Country: US (occurrence: US)
  Receive Date: 20231130
  Receipt Date: 20231130
  Transmission Date: 20240110
  Serious: No
  Sender: FDA-Public Use
  Company Number: US-ADMA BIOLOGICS INC.-US-2022ADM000085

PATIENT
  Age: 45 Year
  Sex: Female

DRUGS (2)
  1. NABI-HB [Suspect]
     Active Substance: HUMAN HEPATITIS B VIRUS IMMUNE GLOBULIN
     Indication: Injury associated with device
     Dosage: UNK UNK, SINGLE
     Route: 030
     Dates: start: 20221020, end: 20221020
  2. ELIQUIS [Concomitant]
     Active Substance: APIXABAN
     Indication: Deep vein thrombosis
     Dosage: UNK
     Route: 065

REACTIONS (1)
  - Anxiety [Unknown]

NARRATIVE: CASE EVENT DATE: 20221020
